FAERS Safety Report 8097148-X (Version None)
Quarter: 2012Q1

REPORT INFORMATION
  Report Type: 
  Country: None (occurrence: None)
  Receive Date: 20120128
  Receipt Date: 20110706
  Transmission Date: 20120608
  Serious: No
  Sender: FDA-Public Use
  Company Number: US-ABBOTT-11P-163-0836825-00

PATIENT
  Age: 34 Year
  Sex: Female

DRUGS (2)
  1. SYNTHROID [Concomitant]
     Indication: HYPOTHYROIDISM
  2. HUMIRA [Suspect]
     Indication: CROHN'S DISEASE
     Dates: start: 20110608

REACTIONS (1)
  - HEADACHE [None]
